FAERS Safety Report 5884494-0 (Version None)
Quarter: 2008Q3

REPORT INFORMATION
  Report Type: 
  Country: None (occurrence: None)
  Receive Date: 20080911
  Receipt Date: 20080828
  Transmission Date: 20090109
  Serious: Yes (Other)
  Sender: FDA-Public Use
  Company Number: 230265J08BRA

PATIENT
  Sex: Female

DRUGS (1)
  1. REBIF [Suspect]
     Dosage: 22 MCG, 3 IN 1 WEEKS
     Dates: start: 20070401

REACTIONS (2)
  - BENIGN OESOPHAGEAL NEOPLASM [None]
  - FEAR [None]
